FAERS Safety Report 19952129 (Version 2)
Quarter: 2022Q1

REPORT INFORMATION
  Report Type: Spontaneous
  Country: RO (occurrence: RO)
  Receive Date: 20211014
  Receipt Date: 20220126
  Transmission Date: 20220424
  Serious: Yes (Hospitalization)
  Sender: FDA-Public Use
  Company Number: RO-MLMSERVICE-20210927-3129263-1

PATIENT
  Age: 35 Year
  Sex: Female

DRUGS (1)
  1. LEVONORGESTREL [Suspect]
     Active Substance: LEVONORGESTREL
     Indication: Intrauterine contraception
     Dosage: 14?G/DAY
     Route: 015

REACTIONS (6)
  - Vasculitis [None]
  - Retinal vasculitis [None]
  - Iridocyclitis [None]
  - Deafness [None]
  - Papilloedema [None]
  - Headache [None]
